FAERS Safety Report 7904940-8 (Version None)
Quarter: 2011Q4

REPORT INFORMATION
  Report Type: 
  Country: None (occurrence: None)
  Receive Date: 20111109
  Receipt Date: 20111102
  Transmission Date: 20120403
  Serious: Yes (Hospitalization)
  Sender: FDA-Public Use
  Company Number: PHHY2011HN96832

PATIENT
  Age: 89 Year
  Sex: Female

DRUGS (2)
  1. DIOVAN [Suspect]
     Dosage: 80 MG, UNK
  2. PANTOPRAZOLE [Suspect]
     Dosage: 40 MG, UNK

REACTIONS (2)
  - LUNG DISORDER [None]
  - CARDIAC DISORDER [None]
